FAERS Safety Report 7792252-5 (Version None)
Quarter: 2011Q4

REPORT INFORMATION
  Report Type: 
  Country: None (occurrence: None)
  Receive Date: 20111003
  Receipt Date: 20110920
  Transmission Date: 20120403
  Serious: Yes (Hospitalization, Other)
  Sender: FDA-Public Use
  Company Number: US-ELI_LILLY_AND_COMPANY-US201107000841

PATIENT
  Age: 77 Year
  Sex: Female

DRUGS (17)
  1. FENTANYL [Concomitant]
     Dosage: 100 UG, EVERY HOUR
  2. OXYGEN [Concomitant]
     Dosage: 2 L, UNK
     Route: 045
  3. DUONEB [Concomitant]
  4. FORTEO [Suspect]
     Indication: OSTEOPOROSIS
     Dosage: 20 UG, QD
     Route: 058
     Dates: start: 20101203, end: 20110822
  5. LISINOPRIL [Concomitant]
     Dosage: 20 MG, BID
  6. GABAPENTIN [Concomitant]
     Dosage: 300 MG, TID
  7. WELLBUTRIN XL [Concomitant]
     Dosage: 150 MG, QD
  8. VANTIN [Concomitant]
  9. LOPRESSOR [Concomitant]
     Dosage: 50 MG, BID
  10. LORAZEPAM [Concomitant]
     Dosage: 0.5 MG, BID
  11. CITALOPRAM HYDROBROMIDE [Concomitant]
     Dosage: 220 MG, QD
  12. SYMBICORT [Concomitant]
  13. DEXAMETHASONE [Concomitant]
     Dosage: 2 MG, BID
  14. NORVASC [Concomitant]
     Dosage: 10 MG, QD
  15. OMEPRAZOLE [Concomitant]
     Dosage: 40 MG, QD
  16. LOVASTATIN [Concomitant]
     Dosage: 40 UG, QD
  17. ALBUTEROL [Concomitant]
     Route: 055

REACTIONS (14)
  - MENTAL DISORDER [None]
  - CHRONIC OBSTRUCTIVE PULMONARY DISEASE [None]
  - PERIPHERAL VASCULAR DISORDER [None]
  - PLEURAL EFFUSION [None]
  - PERIPHERAL ARTERIAL OCCLUSIVE DISEASE [None]
  - ASTHENIA [None]
  - PNEUMONIA [None]
  - WRONG TECHNIQUE IN DRUG USAGE PROCESS [None]
  - LEG AMPUTATION [None]
  - PULMONARY HAEMORRHAGE [None]
  - CAST APPLICATION [None]
  - COR PULMONALE [None]
  - FEELING ABNORMAL [None]
  - OVERDOSE [None]
